FAERS Safety Report 4400801-X (Version None)
Quarter: 2004Q3

REPORT INFORMATION
  Report Type: 
  Country: None (occurrence: None)
  Receive Date: 20040907
  Receipt Date: 20030612
  Transmission Date: 20050211
  Serious: Yes (Hospitalization)
  Sender: FDA-Public Use
  Company Number: US-BRISTOL-MYERS SQUIBB COMPANY-12299996

PATIENT
  Age: 81 Year
  Sex: Female
  Weight: 61 kg

DRUGS (8)
  1. COUMADIN [Suspect]
     Indication: ARRHYTHMIA
     Dates: start: 19990101, end: 20020601
  2. RYTHMOL [Concomitant]
     Dosage: TAKEN FOR YEARS.
  3. VASOTEC [Concomitant]
     Dosage: TAKEN FOR YEARS.
  4. SYNTHROID [Concomitant]
     Dosage: TAKEN FOR YEARS.
  5. EVISTA [Concomitant]
  6. PREMARIN [Concomitant]
     Dosage: CREAM, USED FOR YEARS.
  7. MULTI-VITAMIN [Concomitant]
     Dosage: WITHOUT IRON. TAKEN FOR YEARS.
  8. ASPIRIN [Concomitant]
     Dosage: TAKEN FOR YEARS.

REACTIONS (1)
  - HAEMATOMA [None]
